FAERS Safety Report 6091072-X (Version None)
Quarter: 2009Q1

REPORT INFORMATION
  Report Type: 
  Country: None (occurrence: None)
  Receive Date: 20090225
  Receipt Date: 20090224
  Transmission Date: 20090719
  Serious: Yes (Other)
  Sender: FDA-Public Use
  Company Number: US-PFIZER INC-2007102887

PATIENT
  Sex: Male
  Weight: 88.5 kg

DRUGS (12)
  1. LYRICA [Suspect]
     Indication: BACK PAIN
     Dosage: 150 MG, 2X/DAY
     Dates: start: 20080201, end: 20080901
  2. LYRICA [Suspect]
     Indication: GROIN PAIN
  3. LYRICA [Suspect]
     Indication: TESTICULAR PAIN
  4. TRICOR [Concomitant]
  5. ZOCOR [Concomitant]
  6. ENALAPRIL [Concomitant]
  7. ACETYLSALICYLIC ACID SRT [Concomitant]
  8. HYDROCHLOROTHIAZIDE [Concomitant]
  9. AMLODIPINE [Concomitant]
  10. METOPROLOL [Concomitant]
  11. VITAMINS [Concomitant]
  12. TYLENOL [Concomitant]

REACTIONS (7)
  - BALANCE DISORDER [None]
  - DIZZINESS [None]
  - ECONOMIC PROBLEM [None]
  - HERPES ZOSTER [None]
  - PAIN [None]
  - PRURITUS [None]
  - SKIN HAEMORRHAGE [None]
